FAERS Safety Report 4994531-3 (Version None)
Quarter: 2006Q2

REPORT INFORMATION
  Report Type: 
  Country: None (occurrence: None)
  Receive Date: 20060505
  Receipt Date: 20050706
  Transmission Date: 20061013
  Serious: Yes (Hospitalization)
  Sender: FDA-Public Use
  Company Number: US-MERCK-0507USA00928

PATIENT
  Age: 49 Year
  Sex: Female
  Weight: 57 kg

DRUGS (9)
  1. VIOXX [Suspect]
     Indication: OSTEOARTHRITIS
     Route: 048
     Dates: start: 20000801, end: 20010101
  2. VIOXX [Suspect]
     Route: 048
     Dates: start: 20010101, end: 20030801
  3. VIOXX [Suspect]
     Route: 048
     Dates: start: 20000801, end: 20010101
  4. VIOXX [Suspect]
     Route: 048
     Dates: start: 20010101, end: 20030801
  5. VIOXX [Suspect]
     Indication: FIBROMYALGIA
     Route: 048
     Dates: start: 20000801, end: 20010101
  6. VIOXX [Suspect]
     Route: 048
     Dates: start: 20010101, end: 20030801
  7. VIOXX [Suspect]
     Route: 048
     Dates: start: 20000801, end: 20010101
  8. VIOXX [Suspect]
     Route: 048
     Dates: start: 20010101, end: 20030801
  9. PROGESTERONE [Concomitant]
     Route: 065

REACTIONS (4)
  - CHEST PAIN [None]
  - INTERVERTEBRAL DISC PROTRUSION [None]
  - PALPITATIONS [None]
  - PRESCRIBED OVERDOSE [None]
